FAERS Safety Report 7271136-5 (Version None)
Quarter: 2011Q1

REPORT INFORMATION
  Report Type: 
  Country: None (occurrence: None)
  Receive Date: 20110202
  Receipt Date: 20110122
  Transmission Date: 20110831
  Serious: Yes (Other)
  Sender: FDA-Public Use
  Company Number: US-RB-021140-11

PATIENT
  Sex: Male

DRUGS (2)
  1. SUBUTEX [Suspect]
     Indication: PRODUCT USED FOR UNKNOWN INDICATION
     Dosage: UNKNOWN DOSING DETAILS
     Route: 064
  2. SUBOXONE [Suspect]
     Indication: PRODUCT USED FOR UNKNOWN INDICATION
     Dosage: UNKNOWN DOSING DETAILS
     Route: 064

REACTIONS (14)
  - APPETITE DISORDER [None]
  - CERUMEN IMPACTION [None]
  - INFANTILE COLIC [None]
  - DRUG EXPOSURE DURING PREGNANCY [None]
  - SINUSITIS [None]
  - COUGH [None]
  - SKIN IRRITATION [None]
  - PRURITUS [None]
  - AUTISM [None]
  - CRYING [None]
  - HYPERAESTHESIA [None]
  - HYPERHIDROSIS [None]
  - PYREXIA [None]
  - EAR INFECTION [None]
